FAERS Safety Report 6728587-4 (Version None)
Quarter: 2010Q2

REPORT INFORMATION
  Report Type: 
  Country: None (occurrence: None)
  Receive Date: 20100517
  Receipt Date: 20100505
  Transmission Date: 20101027
  Serious: Yes (Hospitalization)
  Sender: FDA-Public Use
  Company Number: CH-PFIZER INC-2010056923

PATIENT
  Age: 62 Year
  Sex: Male

DRUGS (15)
  1. LYRICA [Suspect]
     Dosage: 150MG PER DAY
     Route: 048
     Dates: start: 20100113, end: 20100216
  2. LYRICA [Suspect]
     Dosage: 225 MG - 250 MG DAILY
     Route: 048
     Dates: start: 20100217, end: 20100224
  3. LYRICA [Suspect]
     Dosage: 300MG DAILY
     Route: 048
     Dates: start: 20100225
  4. WELLBUTRIN [Suspect]
     Dosage: 150MG PER DAY
     Route: 048
     Dates: start: 20100219, end: 20100225
  5. WELLBUTRIN [Suspect]
     Dosage: 300MG DAILY
     Route: 048
     Dates: start: 20100226, end: 20100308
  6. WELLBUTRIN [Suspect]
     Dosage: 150MG DAILY
     Route: 048
     Dates: start: 20100309, end: 20100323
  7. SURMONTIL [Concomitant]
     Dosage: UNK
     Route: 048
     Dates: start: 20100223, end: 20100224
  8. SURMONTIL [Concomitant]
     Dosage: UNK
     Route: 048
     Dates: start: 20100225, end: 20100310
  9. SURMONTIL [Concomitant]
     Dosage: UNK
     Route: 048
     Dates: start: 20100311, end: 20100315
  10. SURMONTIL [Concomitant]
     Dosage: UNK
     Route: 048
     Dates: start: 20100316, end: 20100317
  11. LITHIUM SULFATE [Concomitant]
     Dosage: UNK
     Route: 048
     Dates: start: 20090501, end: 20100308
  12. LITHIUM SULFATE [Concomitant]
     Dosage: UNK
     Route: 048
     Dates: start: 20100309
  13. PLAVIX [Concomitant]
     Dosage: UNK
     Route: 048
     Dates: start: 20080401
  14. AMLODIPINE [Concomitant]
     Dosage: UNK
     Route: 048
     Dates: start: 20070301
  15. PRAVASTATIN SODIUM [Concomitant]
     Dosage: UNK
     Route: 048
     Dates: start: 20060901

REACTIONS (1)
  - VENTRICULAR EXTRASYSTOLES [None]
